FAERS Safety Report 8827955 (Version 1)
Quarter: 2012Q4

REPORT INFORMATION
  Report Type: 
  Country: CA (occurrence: US)
  Receive Date: 20121008
  Receipt Date: 20121008
  Transmission Date: 20130627
  Serious: No
  Sender: FDA-Public Use
  Company Number: US-B.I. PHARMACEUTICALS,INC./RIDGEFIELD-2012-BP-23644BP

PATIENT
  Sex: Female
  Weight: 74 kg

DRUGS (5)
  1. PRADAXA [Suspect]
     Indication: HEART RATE IRREGULAR
     Dosage: 150 mg
     Route: 048
     Dates: start: 2012, end: 2012
  2. WARFARIN [Concomitant]
     Indication: ANTICOAGULANT THERAPY
     Dosage: 3 mg
     Route: 048
     Dates: start: 2012
  3. BISOPROLOL [Concomitant]
     Indication: HYPERTENSION
     Dosage: 10 mg
     Route: 048
  4. ATORVASTATIN [Concomitant]
     Indication: BLOOD CHOLESTEROL INCREASED
     Dosage: 40 mg
     Route: 048
  5. RAMIPRIL [Concomitant]
     Indication: HYPERTENSION
     Dosage: 2.5 mg
     Route: 048

REACTIONS (1)
  - Vomiting [Recovered/Resolved]
